FAERS Safety Report 8086921-X (Version None)
Quarter: 2012Q1

REPORT INFORMATION
  Report Type: 
  Country: None (occurrence: None)
  Receive Date: 20120128
  Receipt Date: 20110613
  Transmission Date: 20120608
  Serious: No
  Sender: FDA-Public Use
  Company Number: US-ABBOTT-11P-163-0732462-00

PATIENT
  Sex: Female
  Weight: 63.56 kg

DRUGS (8)
  1. CYMBALTA [Concomitant]
     Indication: ARTHRALGIA
     Dates: end: 20110601
  2. PHENERGAN [Concomitant]
     Indication: PRODUCT USED FOR UNKNOWN INDICATION
  3. HUMIRA [Suspect]
     Indication: CROHN'S DISEASE
     Dates: start: 20090101, end: 20110501
  4. DOXEPIN [Concomitant]
     Indication: INSOMNIA
  5. NEURONTIN [Concomitant]
     Indication: RESTLESS LEGS SYNDROME
  6. TRAMADOL HCL [Concomitant]
     Indication: PAIN
  7. NEXIUM [Concomitant]
     Indication: GASTROOESOPHAGEAL REFLUX DISEASE
  8. REQUIP [Concomitant]
     Indication: RESTLESS LEGS SYNDROME

REACTIONS (7)
  - HAEMATOCHEZIA [None]
  - DIARRHOEA [None]
  - LUPUS-LIKE SYNDROME [None]
  - SKIN LESION [None]
  - RAYNAUD'S PHENOMENON [None]
  - ABDOMINAL PAIN [None]
  - CROHN'S DISEASE [None]
